FAERS Safety Report 11600938 (Version 1)
Quarter: 2015Q4

REPORT INFORMATION
  Report Type: Spontaneous
  Country: US (occurrence: US)
  Receive Date: 20151006
  Receipt Date: 20151006
  Transmission Date: 20160304
  Serious: No
  Sender: FDA-Public Use
  Company Number: US-AMGEN-USASP2015009523

PATIENT
  Age: 63 Year
  Sex: Female

DRUGS (2)
  1. TEGRETOL [Concomitant]
     Active Substance: CARBAMAZEPINE
     Indication: TRIGEMINAL NEURALGIA
  2. PROLIA [Suspect]
     Active Substance: DENOSUMAB
     Indication: OSTEOPOROSIS POSTMENOPAUSAL
     Dosage: UNK, UNK
     Route: 065

REACTIONS (6)
  - Pain [Unknown]
  - Dizziness [Unknown]
  - Paraesthesia [Unknown]
  - Paraesthesia oral [Unknown]
  - Trigeminal neuralgia [Unknown]
  - Adverse reaction [Unknown]
